FAERS Safety Report 13277807 (Version 2)
Quarter: 2017Q1

REPORT INFORMATION
  Report Type: Report from Study
  Country: US (occurrence: US)
  Receive Date: 20170228
  Receipt Date: 20170309
  Transmission Date: 20170428
  Serious: Yes (Other)
  Sender: FDA-Public Use
  Company Number: US-GILEAD-2017-0259475

PATIENT
  Age: 62 Year
  Sex: Female
  Weight: 55.96 kg

DRUGS (2)
  1. XANAX [Concomitant]
     Active Substance: ALPRAZOLAM
     Dosage: 0.25 MG, QHS PRN
     Route: 048
  2. LEDIPASVIR/SOFOSBUVIR [Suspect]
     Active Substance: LEDIPASVIR\SOFOSBUVIR
     Indication: CHRONIC HEPATITIS C
     Dosage: 1 DF, QD
     Route: 048
     Dates: start: 20160819, end: 20161015

REACTIONS (13)
  - Insomnia [Unknown]
  - Disturbance in attention [Unknown]
  - Mania [Unknown]
  - Mental disorder [Unknown]
  - Unevaluable event [Unknown]
  - Hypertension [Unknown]
  - Palpitations [Unknown]
  - Headache [Unknown]
  - Lacrimal disorder [Unknown]
  - Dizziness [Unknown]
  - Hypoaesthesia [Unknown]
  - Neuropathy peripheral [Not Recovered/Not Resolved]
  - Anxiety [Unknown]

NARRATIVE: CASE EVENT DATE: 201608
